FAERS Safety Report 19074958 (Version 1)
Quarter: 2021Q1

REPORT INFORMATION
  Report Type: Spontaneous
  Country: US (occurrence: US)
  Receive Date: 20210330
  Receipt Date: 20210330
  Transmission Date: 20210420
  Serious: No
  Sender: FDA-Public Use
  Company Number: US-ROCHE-2662386

PATIENT
  Sex: Male

DRUGS (15)
  1. ASPIRIN. [Concomitant]
     Active Substance: ASPIRIN
  2. CITIRIZINE [Concomitant]
  3. FUROSEMIDE. [Concomitant]
     Active Substance: FUROSEMIDE
  4. OMEPRAZOLE. [Concomitant]
     Active Substance: OMEPRAZOLE
  5. ROSUVASTATIN. [Concomitant]
     Active Substance: ROSUVASTATIN
  6. MONTELUKAST [Concomitant]
     Active Substance: MONTELUKAST SODIUM
  7. EZETIMIBE. [Concomitant]
     Active Substance: EZETIMIBE
  8. ERIVEDGE [Suspect]
     Active Substance: VISMODEGIB
     Indication: BASAL CELL CARCINOMA
     Route: 048
  9. RAMIPRIL. [Concomitant]
     Active Substance: RAMIPRIL
  10. HYDROCODONE [Concomitant]
     Active Substance: HYDROCODONE
  11. CYCLOBENZAPRINE. [Concomitant]
     Active Substance: CYCLOBENZAPRINE
  12. ZOLPIDEM [Concomitant]
     Active Substance: ZOLPIDEM TARTRATE
  13. METFORMIN [Concomitant]
     Active Substance: METFORMIN HYDROCHLORIDE
  14. LEVOTHYROXINE. [Concomitant]
     Active Substance: LEVOTHYROXINE
  15. CARVEDILOL. [Concomitant]
     Active Substance: CARVEDILOL

REACTIONS (1)
  - Muscle spasms [Unknown]
